FAERS Safety Report 9678028 (Version 2)
Quarter: 2013Q4

REPORT INFORMATION
  Report Type: Spontaneous
  Country: IN (occurrence: None)
  Receive Date: 20131106
  Receipt Date: 20131127
  Transmission Date: 20140711
  Serious: Yes (Hospitalization)
  Sender: FDA-Public Use
  Company Number: AUR-APL-2013-09139

PATIENT
  Age: 37 Year
  Sex: Male

DRUGS (1)
  1. CEFTRIAXONE [Suspect]
     Indication: SCLEROTHERAPY
     Dosage: INJECTION
     Dates: start: 201211, end: 201211

REACTIONS (12)
  - Neuromyotonia [None]
  - Autonomic nervous system imbalance [None]
  - Neuropsychiatric syndrome [None]
  - Pain in extremity [None]
  - Hyperhidrosis [None]
  - Agitation [None]
  - Insomnia [None]
  - Tremor [None]
  - Confusional state [None]
  - Disorientation [None]
  - Hyponatraemia [None]
  - Scrotal infection [None]
